FAERS Safety Report 25918086 (Version 1)
Quarter: 2025Q4

REPORT INFORMATION
  Report Type: Spontaneous
  Country: US (occurrence: US)
  Receive Date: 20251014
  Receipt Date: 20251014
  Transmission Date: 20260118
  Serious: No
  Sender: KALVISTA PHARMACEUTICALS
  Company Number: US-KP-00046

PATIENT
  Age: 70 Year
  Sex: Male

DRUGS (2)
  1. EKTERLY [Suspect]
     Active Substance: SEBETRALSTAT
     Indication: Hereditary angioedema
     Dosage: TIME INTERVAL: AS NECESSARY
     Route: 048
     Dates: start: 20250723
  2. DANAZOL [Concomitant]
     Active Substance: DANAZOL

REACTIONS (1)
  - Prescribed underdose [Unknown]
